FAERS Safety Report 6137579-8 (Version None)
Quarter: 2009Q1

REPORT INFORMATION
  Report Type: 
  Country: None (occurrence: None)
  Receive Date: 20090327
  Receipt Date: 20090327
  Transmission Date: 20090719
  Serious: Yes (Life-Threatening)
  Sender: FDA-Public Use
  Company Number: None

PATIENT
  Sex: Female
  Weight: 54.4316 kg

DRUGS (2)
  1. ACTONEL [Suspect]
     Indication: BONE DISORDER
     Dosage: 1 TABLET ONCE A MONTH BY MOUTH
     Route: 048
     Dates: start: 20090213
  2. ACTONEL [Suspect]
     Indication: PROPHYLAXIS
     Dosage: 1 TABLET ONCE A MONTH BY MOUTH
     Route: 048
     Dates: start: 20090213

REACTIONS (5)
  - ARTHROPATHY [None]
  - CHEST PAIN [None]
  - FEELING ABNORMAL [None]
  - HAEMATOCHEZIA [None]
  - OCULAR HYPERAEMIA [None]
